FAERS Safety Report 6092443-8 (Version None)
Quarter: 2009Q1

REPORT INFORMATION
  Report Type: 
  Country: None (occurrence: None)
  Receive Date: 20090225
  Receipt Date: 20090213
  Transmission Date: 20090719
  Serious: Yes (Other)
  Sender: FDA-Public Use
  Company Number: FR-PFIZER INC-2009171499

PATIENT

DRUGS (4)
  1. NEURONTIN [Suspect]
     Indication: CERVICAL ROOT PAIN
     Dosage: FREQUENCY: EVERY DAY;
     Route: 048
     Dates: start: 20081117, end: 20081121
  2. PARACETAMOL [Concomitant]
     Indication: PAIN
     Dosage: UNK
  3. DICLOFENAC SODIUM [Concomitant]
     Indication: PAIN
     Dosage: UNK
     Route: 048
     Dates: end: 20081110
  4. CODEINE PHOSPHATE/PARACETAMOL [Concomitant]
     Indication: PAIN
     Dosage: UNK
     Route: 048

REACTIONS (1)
  - HEMIPARESIS [None]
